FAERS Safety Report 15026857 (Version 1)
Quarter: 2018Q2

REPORT INFORMATION
  Report Type: Spontaneous
  Country: US (occurrence: US)
  Receive Date: 20180619
  Receipt Date: 20180619
  Transmission Date: 20180711
  Serious: No
  Sender: FDA-Public Use
  Company Number: US-SHIRE-US201821919

PATIENT
  Sex: Male
  Weight: 70.3 kg

DRUGS (2)
  1. XIIDRA [Suspect]
     Active Substance: LIFITEGRAST
     Indication: DRY EYE
     Dosage: ONE DROP IN THE RIGHT EYE, 2X/DAY:BID
     Route: 047
     Dates: start: 20180602
  2. XIIDRA [Suspect]
     Active Substance: LIFITEGRAST
     Indication: OFF LABEL USE

REACTIONS (3)
  - Vision blurred [Unknown]
  - Drug ineffective [Unknown]
  - Off label use [Unknown]
